FAERS Safety Report 6241366-X (Version None)
Quarter: 2009Q2

REPORT INFORMATION
  Report Type: 
  Country: None (occurrence: None)
  Receive Date: 20090617
  Receipt Date: 20080208
  Transmission Date: 20091009
  Serious: No
  Sender: FDA-Public Use
  Company Number: 272008

PATIENT
  Age: 74 Year
  Sex: Female

DRUGS (5)
  1. LEVEMIR [Suspect]
     Indication: INSULIN-REQUIRING TYPE 2 DIABETES MELLITUS
     Dosage: 25 U, QD, SUBCUTANEOUS
     Route: 058
     Dates: start: 20080124
  2. METFORMIN HCL [Concomitant]
  3. GLIPIZIDE [Concomitant]
  4. LYRICA [Concomitant]
  5. TRAMADOL HCL [Concomitant]

REACTIONS (2)
  - BLOOD GLUCOSE FLUCTUATION [None]
  - BLOOD GLUCOSE INCREASED [None]
